FAERS Safety Report 24417856 (Version 2)
Quarter: 2024Q4

REPORT INFORMATION
  Report Type: Spontaneous
  Country: US (occurrence: US)
  Receive Date: 20241009
  Receipt Date: 20241015
  Transmission Date: 20250114
  Serious: No
  Sender: PFIZER
  Company Number: US-PFIZER INC-202400270929

PATIENT
  Age: 42 Year

DRUGS (1)
  1. HYDROXYZINE PAMOATE [Suspect]
     Active Substance: HYDROXYZINE PAMOATE
     Dosage: 11 MG, DAILY
     Route: 048

REACTIONS (1)
  - Drug ineffective [Unknown]
